FAERS Safety Report 5336818-0 (Version None)
Quarter: 2007Q2

REPORT INFORMATION
  Report Type: 
  Country: None (occurrence: None)
  Receive Date: 20070529
  Receipt Date: 20070523
  Transmission Date: 20071010
  Serious: Yes (Death, Other)
  Sender: FDA-Public Use
  Company Number: PHBS2007DE08550

PATIENT
  Age: 81 Year
  Sex: Female

DRUGS (3)
  1. DICLOFENAC [Suspect]
  2. METHOTREXATE [Suspect]
  3. NOVAMINSULFON ^BRAUN^ [Suspect]

REACTIONS (5)
  - AGRANULOCYTOSIS [None]
  - DRUG INTERACTION [None]
  - GASTRITIS HAEMORRHAGIC [None]
  - PNEUMONIA [None]
  - WHITE BLOOD CELL COUNT DECREASED [None]
